FAERS Safety Report 7177362-8 (Version None)
Quarter: 2010Q4

REPORT INFORMATION
  Report Type: 
  Country: None (occurrence: None)
  Receive Date: 20101220
  Receipt Date: 20101206
  Transmission Date: 20110411
  Serious: Yes (Hospitalization)
  Sender: FDA-Public Use
  Company Number: PHHY2010CH82832

PATIENT
  Age: 81 Year
  Sex: Male

DRUGS (5)
  1. DIOVAN HCT [Suspect]
     Dosage: 480/75 MG, DAILY (03 DOSAGE FORMS PER 01 DAY)
  2. SINTROM [Suspect]
  3. DILATREND [Concomitant]
     Dosage: 01 DOSAGE FORM PER DAY
     Route: 048
  4. REMERON [Concomitant]
     Dosage: DAILY, UNK
  5. PANTOZOL [Concomitant]
     Route: 048

REACTIONS (4)
  - DEHYDRATION [None]
  - DRUG TOXICITY [None]
  - HYPOTENSION [None]
  - MEDICATION ERROR [None]
